FAERS Safety Report 5531604-0 (Version None)
Quarter: 2007Q4

REPORT INFORMATION
  Report Type: 
  Country: None (occurrence: None)
  Receive Date: 20071203
  Receipt Date: 20071129
  Transmission Date: 20080405
  Serious: Yes (Death, Hospitalization)
  Sender: FDA-Public Use
  Company Number: PHEH2007US07088

PATIENT
  Age: 88 Year
  Sex: Male

DRUGS (1)
  1. ZELNORM [Suspect]
     Dosage: UNK, UNK

REACTIONS (5)
  - APHASIA [None]
  - CARDIO-RESPIRATORY ARREST [None]
  - CEREBROVASCULAR ACCIDENT [None]
  - GASTROINTESTINAL OBSTRUCTION [None]
  - PAIN IN EXTREMITY [None]
